FAERS Safety Report 4440660-2 (Version None)
Quarter: 2004Q3

REPORT INFORMATION
  Report Type: 
  Country: None (occurrence: None)
  Receive Date: 20040831
  Receipt Date: 20040820
  Transmission Date: 20050211
  Serious: Yes (Other)
  Sender: FDA-Public Use
  Company Number: 200410687BCA

PATIENT
  Sex: Male

DRUGS (76)
  1. PLASBUMIN-25 [Suspect]
     Dosage: 100 ML, NI, INTRAVENOUS
     Route: 042
     Dates: start: 19880930, end: 19881004
  2. ALBUMIN (HUMAN) [Suspect]
     Dosage: INTRAVENOUS
     Route: 042
     Dates: start: 19880919, end: 19880929
  3. ALBUMIN (HUMAN) [Suspect]
     Dosage: INTRAVENOUS
     Route: 042
     Dates: start: 19880929, end: 19881003
  4. ALBUMIN (HUMAN) [Suspect]
     Dosage: INTRAVENOUS
     Route: 042
     Dates: start: 19880930, end: 19881004
  5. ALBUMIN (HUMAN) [Suspect]
     Dosage: INTRAVENOUS
     Route: 042
     Dates: start: 19880915
  6. ALBUMIN (HUMAN) [Suspect]
  7. ALBUMIN (HUMAN) [Suspect]
  8. PACKED CELLS (BLOOD CELLS, PACKED HUMAN) [Suspect]
     Dosage: INTRAVENOUS
     Route: 042
     Dates: start: 19880111
  9. PACKED CELLS (BLOOD CELLS, PACKED HUMAN) [Suspect]
     Dosage: INTRAVENOUS
     Route: 042
     Dates: start: 19881008
  10. PACKED CELLS (BLOOD CELLS, PACKED HUMAN) [Suspect]
     Dosage: INTRAVENOUS
     Route: 042
     Dates: start: 19881008
  11. PACKED CELLS (BLOOD CELLS, PACKED HUMAN) [Suspect]
     Dosage: INTRAVENOUS
     Route: 042
     Dates: start: 19881014
  12. PACKED CELLS (BLOOD CELLS, PACKED HUMAN) [Suspect]
     Dosage: INTRAVENOUS
     Route: 042
     Dates: start: 19881014
  13. PACKED CELLS (BLOOD CELLS, PACKED HUMAN) [Suspect]
     Dosage: INTRAVENOUS
     Route: 042
     Dates: start: 19881101
  14. PACKED CELLS (BLOOD CELLS, PACKED HUMAN) [Suspect]
     Dosage: INTRAVENOUS
     Route: 042
     Dates: start: 19881101
  15. PACKED CELLS (BLOOD CELLS, PACKED HUMAN) [Suspect]
  16. PACKED CELLS (BLOOD CELLS, PACKED HUMAN) [Concomitant]
  17. PACKED CELLS (BLOOD CELLS, PACKED HUMAN) [Suspect]
  18. PACKED CELLS (BLOOD CELLS, PACKED HUMAN) [Suspect]
  19. PACKED CELLS (BLOOD CELLS, PACKED HUMAN) [Suspect]
  20. PACKED CELLS (BLOOD CELLS, PACKED HUMAN) [Suspect]
  21. PLATELET (PLATELETS, HUMAN BLOOD) [Suspect]
     Dosage: INTRAVENOUS
     Route: 042
     Dates: start: 19880917
  22. PLATELET (PLATELETS, HUMAN BLOOD) [Suspect]
     Dosage: INTRAVENOUS
     Route: 042
     Dates: start: 19880917
  23. PLATELET (PLATELETS, HUMAN BLOOD) [Suspect]
     Dosage: INTRAVENOUS
     Route: 042
     Dates: start: 19880917
  24. PLATELET (PLATELETS, HUMAN BLOOD) [Suspect]
     Dosage: INTRAVENOUS
     Route: 042
     Dates: start: 19880917
  25. PLATELET (PLATELETS, HUMAN BLOOD) [Suspect]
     Dosage: INTRAVENOUS
     Route: 042
     Dates: start: 19880917
  26. PLATELET (PLATELETS, HUMAN BLOOD) [Suspect]
     Dosage: INTRAVENOUS
     Route: 042
     Dates: start: 19880917
  27. PLATELET (PLATELETS, HUMAN BLOOD) [Suspect]
  28. PLATELET (PLATELETS, HUMAN BLOOD) [Suspect]
  29. PLATELET (PLATELETS, HUMAN BLOOD) [Suspect]
  30. PLATELET (PLATELETS, HUMAN BLOOD) [Suspect]
  31. PLATELET (PLATELETS, HUMAN BLOOD) [Suspect]
  32. PLATELET (PLATELETS, HUMAN BLOOD) [Suspect]
  33. PLATELET (PLATELETS, HUMAN BLOOD) [Suspect]
  34. PLATELET (PLATELETS, HUMAN BLOOD) [Suspect]
  35. PLATELET (PLATELETS, HUMAN BLOOD) [Suspect]
  36. PLATELET (PLATELETS, HUMAN BLOOD) [Suspect]
  37. PLATELET (PLATELETS, HUMAN BLOOD) [Suspect]
  38. PLATELET (PLATELETS, HUMAN BLOOD) [Suspect]
  39. AFH (BLOOD AND RELATED PRODUCTS) [Suspect]
     Dosage: INTRAVENOUS
     Route: 042
     Dates: start: 19880917
  40. AFH (BLOOD AND RELATED PRODUCTS) [Suspect]
     Dosage: INTRAVENOUS
     Route: 042
     Dates: start: 19880917
  41. AFH (BLOOD AND RELATED PRODUCTS) [Suspect]
     Dosage: INTRAVENOUS
     Route: 042
     Dates: start: 19880917
  42. AFH (BLOOD AND RELATED PRODUCTS) [Suspect]
     Dosage: INTRAVENOUS
     Route: 042
     Dates: start: 19880917
  43. AFH (BLOOD AND RELATED PRODUCTS) [Suspect]
     Dosage: INTRAVENOUS
     Route: 042
     Dates: start: 19880917
  44. AFH (BLOOD AND RELATED PRODUCTS) [Suspect]
     Dosage: INTRAVENOUS
     Route: 042
     Dates: start: 19880917
  45. AFH (BLOOD AND RELATED PRODUCTS) [Suspect]
  46. AFH (BLOOD AND RELATED PRODUCTS) [Suspect]
  47. AFH (BLOOD AND RELATED PRODUCTS) [Suspect]
  48. AFH (BLOOD AND RELATED PRODUCTS) [Suspect]
  49. FRESH FROZEN PLASMA [Suspect]
     Dosage: INTRAVENOUS
     Route: 042
     Dates: start: 19880915
  50. FRESH FROZEN PLASMA [Suspect]
     Dosage: INTRAVENOUS
     Route: 042
     Dates: start: 19880915
  51. FRESH FROZEN PLASMA [Suspect]
     Dosage: INTRAVENOUS
     Route: 042
     Dates: start: 19880916
  52. FRESH FROZEN PLASMA [Suspect]
     Dosage: INTRAVENOUS
     Route: 042
     Dates: start: 19880916
  53. FRESH FROZEN PLASMA [Suspect]
     Dosage: INTRAVENOUS
     Route: 042
     Dates: start: 19880916
  54. FRESH FROZEN PLASMA [Suspect]
     Dosage: INTRAVENOUS
     Route: 042
     Dates: start: 19880917
  55. FRESH FROZEN PLASMA [Suspect]
     Dosage: INTRAVENOUS
     Route: 042
     Dates: start: 19880917
  56. FRESH FROZEN PLASMA [Suspect]
  57. FRESH FROZEN PLASMA [Suspect]
  58. FRESH FROZEN PLASMA [Suspect]
  59. FRESH FROZEN PLASMA [Suspect]
  60. FRESH FROZEN PLASMA [Suspect]
  61. FRESH FROZEN PLASMA [Suspect]
  62. FRESH FROZEN PLASMA [Concomitant]
  63. RED BLOOD CELLS [Suspect]
     Dosage: INTRAVENOUS
     Route: 042
     Dates: start: 19880916
  64. RED BLOOD CELLS [Suspect]
     Dosage: INTRAVENOUS
     Route: 042
     Dates: start: 19880917
  65. RED BLOOD CELLS [Suspect]
     Dosage: INTRAVENOUS
     Route: 042
     Dates: start: 19880917
  66. RED BLOOD CELLS [Suspect]
  67. RED BLOOD CELLS [Suspect]
  68. RED BLOOD CELLS [Suspect]
  69. RED BLOOD CELLS [Suspect]
  70. RED BLOOD CELLS [Suspect]
  71. RED BLOOD CELLS [Suspect]
  72. RED BLOOD CELLS [Suspect]
  73. RED BLOOD CELLS [Suspect]
  74. RED BLOOD CELLS [Suspect]
  75. RED BLOOD CELLS [Suspect]
  76. RED BLOOD CELLS [Suspect]

REACTIONS (1)
  - HEPATITIS C POSITIVE [None]
